FAERS Safety Report 8773543 (Version 3)
Quarter: 2013Q1

REPORT INFORMATION
  Report Type: Spontaneous
  Country: JP (occurrence: JP)
  Receive Date: 20120907
  Receipt Date: 20130124
  Transmission Date: 20140127
  Serious: Yes (Hospitalization)
  Sender: FDA-Public Use
  Company Number: JP-VIIV HEALTHCARE LIMITED-B0827483A

PATIENT
  Age: 54 Year
  Sex: Male

DRUGS (8)
  1. CELSENTRI [Suspect]
     Indication: HIV INFECTION
     Dosage: 600MG TWICE PER DAY
     Route: 048
     Dates: start: 20120721
  2. STOCRIN [Suspect]
     Indication: HIV INFECTION
     Dosage: 600MG PER DAY
     Route: 048
     Dates: start: 20120727
  3. TRUVADA [Suspect]
     Indication: HIV INFECTION
     Dosage: 1IUAX PER DAY
     Route: 048
     Dates: start: 20120412
  4. VIDEX [Suspect]
     Indication: HIV INFECTION
     Dosage: 200MG TWICE PER DAY
     Route: 048
     Dates: start: 20120721
  5. ESANBUTOL [Concomitant]
     Indication: ATYPICAL MYCOBACTERIAL INFECTION
     Dosage: 1000MG PER DAY
     Route: 048
     Dates: start: 20120319
  6. MYCOBUTIN [Concomitant]
     Indication: ATYPICAL MYCOBACTERIAL INFECTION
     Dosage: 450MG PER DAY
     Route: 048
     Dates: start: 20120319
  7. VALIXA [Concomitant]
     Indication: CYTOMEGALOVIRUS INFECTION
     Dosage: 450MG TWICE PER DAY
     Route: 048
     Dates: start: 20120305
  8. ZITHROMAC [Concomitant]
     Indication: ATYPICAL MYCOBACTERIAL INFECTION
     Dosage: 600MG PER DAY
     Route: 048
     Dates: start: 20120507

REACTIONS (3)
  - Rash [Recovered/Resolved]
  - Pruritus [Recovered/Resolved]
  - Pyrexia [Recovering/Resolving]
